FAERS Safety Report 5109113-2 (Version None)
Quarter: 2006Q3

REPORT INFORMATION
  Report Type: 
  Country: None (occurrence: None)
  Receive Date: 20060731
  Receipt Date: 20060506
  Transmission Date: 20061208
  Serious: No
  Sender: FDA-Public Use
  Company Number: 2006PV013399

PATIENT
  Age: 50 Year
  Sex: Female
  Weight: 97.977 kg

DRUGS (4)
  1. BYETTA [Suspect]
     Indication: DIABETES MELLITUS NON-INSULIN-DEPENDENT
     Dosage: 5 MCG;BID;SC
     Route: 058
     Dates: start: 20060502
  2. METFORMIN HCL [Concomitant]
  3. ACTOS [Concomitant]
  4. GLUCOVANCE [Concomitant]

REACTIONS (1)
  - BLOOD GLUCOSE INCREASED [None]
